FAERS Safety Report 5643230-3 (Version None)
Quarter: 2008Q1

REPORT INFORMATION
  Report Type: 
  Country: None (occurrence: None)
  Receive Date: 20080228
  Receipt Date: 20080219
  Transmission Date: 20080703
  Serious: Yes (Life-Threatening, Hospitalization)
  Sender: FDA-Public Use
  Company Number: FR-AVENTIS-200810047FR

PATIENT
  Age: 45 Year
  Sex: Female
  Weight: 56 kg

DRUGS (4)
  1. TAXOTERE [Suspect]
     Indication: BREAST CANCER
     Route: 042
     Dates: start: 20070821, end: 20071003
  2. ZOPHREN                            /00955301/ [Concomitant]
     Route: 042
     Dates: start: 20071003, end: 20071003
  3. SOLU-MEDROL [Concomitant]
     Route: 042
     Dates: start: 20071003, end: 20071003
  4. CORTANCYL [Concomitant]
     Route: 048
     Dates: start: 20071002, end: 20071005

REACTIONS (6)
  - ACUTE PULMONARY OEDEMA [None]
  - BLOOD PRESSURE INCREASED [None]
  - CHILLS [None]
  - DYSPNOEA [None]
  - HEART RATE INCREASED [None]
  - TACHYPNOEA [None]
